FAERS Safety Report 9480656 (Version 1)
Quarter: 2013Q3

REPORT INFORMATION
  Report Type: Spontaneous
  Country: US (occurrence: US)
  Receive Date: 20130828
  Receipt Date: 20130828
  Transmission Date: 20140515
  Serious: Yes (Other)
  Sender: FDA-Public Use
  Company Number: US-AMGEN-KDL115897

PATIENT
  Age: 55 Year
  Sex: Female

DRUGS (3)
  1. ENBREL [Suspect]
     Indication: RHEUMATOID ARTHRITIS
     Dosage: 25 MG, 2 TIMES/WK
     Route: 058
     Dates: start: 20040824
  2. ALENDRONATE SODIUM [Concomitant]
  3. OMEPRAZOLE [Concomitant]

REACTIONS (13)
  - Raynaud^s phenomenon [Unknown]
  - Osteopenia [Unknown]
  - Osteoarthritis [Unknown]
  - Carpal tunnel syndrome [Unknown]
  - Balance disorder [Unknown]
  - Tremor [Unknown]
  - Photopsia [Unknown]
  - Fatigue [Unknown]
  - Nasopharyngitis [Unknown]
  - Influenza like illness [Unknown]
  - Nausea [Unknown]
  - Vomiting [Unknown]
  - Headache [Unknown]
